FAERS Safety Report 6046330-1 (Version None)
Quarter: 2009Q1

REPORT INFORMATION
  Report Type: 
  Country: None (occurrence: None)
  Receive Date: 20090122
  Receipt Date: 20090113
  Transmission Date: 20090719
  Serious: Yes (Other)
  Sender: FDA-Public Use
  Company Number: US-AMGEN-QUU289593

PATIENT
  Sex: Female

DRUGS (5)
  1. ENBREL [Suspect]
     Indication: DRUG USE FOR UNKNOWN INDICATION
     Route: 030
     Dates: start: 20050101, end: 20080624
  2. ACCUTANE [Concomitant]
  3. SORIATANE [Concomitant]
  4. PROTOPIC [Concomitant]
  5. CLOBETASOL PROPIONATE [Concomitant]

REACTIONS (10)
  - ALOPECIA [None]
  - ALOPECIA SCARRING [None]
  - ARTHRALGIA [None]
  - CUTANEOUS LUPUS ERYTHEMATOSUS [None]
  - DIZZINESS [None]
  - FATIGUE [None]
  - NIGHT SWEATS [None]
  - PRODUCTIVE COUGH [None]
  - RHINORRHOEA [None]
  - VISION BLURRED [None]
